FAERS Safety Report 17053945 (Version 1)
Quarter: 2019Q4

REPORT INFORMATION
  Report Type: Spontaneous
  Country: US (occurrence: US)
  Receive Date: 20191120
  Receipt Date: 20191120
  Transmission Date: 20200122
  Serious: Yes (Death)
  Sender: FDA-Public Use
  Company Number: US-HIKMA PHARMACEUTICALS USA INC.-US-H14001-19-05785

PATIENT
  Sex: Female

DRUGS (1)
  1. PREDNISONE. [Suspect]
     Active Substance: PREDNISONE
     Indication: SCIATICA
     Route: 065

REACTIONS (7)
  - Septic shock [Fatal]
  - Meningitis [Fatal]
  - Multiple organ dysfunction syndrome [Fatal]
  - Extradural abscess [Fatal]
  - Embolic stroke [Fatal]
  - Endocarditis [Fatal]
  - Psoas abscess [Fatal]
